FAERS Safety Report 5542599-8 (Version None)
Quarter: 2007Q4

REPORT INFORMATION
  Report Type: 
  Country: None (occurrence: None)
  Receive Date: 20071205
  Receipt Date: 20071205
  Transmission Date: 20080405
  Serious: Yes (Other)
  Sender: FDA-Public Use
  Company Number: None

PATIENT
  Sex: Female
  Weight: 58.9676 kg

DRUGS (1)
  1. GLUCOVANCE 5 / 500 [Suspect]
     Indication: TYPE 2 DIABETES MELLITUS
     Dosage: 5/500 TWICE BID 120
     Dates: start: 20040601

REACTIONS (4)
  - MALAISE [None]
  - NAUSEA [None]
  - NO THERAPEUTIC RESPONSE [None]
  - VOMITING [None]
